FAERS Safety Report 15195609 (Version 3)
Quarter: 2018Q3

REPORT INFORMATION
  Report Type: Spontaneous
  Country: CH (occurrence: CH)
  Receive Date: 20180725
  Receipt Date: 20180821
  Transmission Date: 20181010
  Serious: Yes (Hospitalization, Other)
  Sender: FDA-Public Use
  Company Number: CH-BAYER-2018-134878

PATIENT
  Sex: Male
  Weight: 70 kg

DRUGS (3)
  1. XOFIGO [Suspect]
     Active Substance: RADIUM RA-223 DICHLORIDE
     Indication: HORMONE-REFRACTORY PROSTATE CANCER
     Dosage: 55 KBQ / KG
     Dates: start: 20180529
  2. XOFIGO [Suspect]
     Active Substance: RADIUM RA-223 DICHLORIDE
     Indication: HORMONE-REFRACTORY PROSTATE CANCER
     Dosage: 55 KBQ/ KG
     Dates: start: 20180403
  3. XOFIGO [Suspect]
     Active Substance: RADIUM RA-223 DICHLORIDE
     Indication: METASTASES TO BONE
     Dosage: 55 KBQ / KG
     Dates: start: 20180501

REACTIONS (6)
  - Metastases to spine [None]
  - Pneumonia [None]
  - Thrombocytopenia [None]
  - Spinal cord compression [None]
  - Metastases to central nervous system [None]
  - Loss of consciousness [None]
